FAERS Safety Report 9736285 (Version 2)
Quarter: 2013Q4

REPORT INFORMATION
  Report Type: Report from Study
  Country: US (occurrence: US)
  Receive Date: 20131206
  Receipt Date: 20131206
  Transmission Date: 20140711
  Serious: Yes (Hospitalization)
  Sender: FDA-Public Use
  Company Number: US-ROCHE-1284330

PATIENT
  Age: 55 Year
  Sex: Female

DRUGS (3)
  1. XELODA [Suspect]
     Indication: COLORECTAL CANCER METASTATIC
     Route: 048
     Dates: start: 20130927
  2. XELODA [Suspect]
     Route: 048
  3. XELODA [Suspect]
     Route: 048

REACTIONS (4)
  - Procedural complication [Recovering/Resolving]
  - Diarrhoea [Recovered/Resolved]
  - Constipation [Not Recovered/Not Resolved]
  - Malaise [Not Recovered/Not Resolved]
